FAERS Safety Report 9423421 (Version 1)
Quarter: 2013Q3

REPORT INFORMATION
  Report Type: Spontaneous
  Country: US (occurrence: US)
  Receive Date: 20130726
  Receipt Date: 20130726
  Transmission Date: 20140515
  Serious: No
  Sender: FDA-Public Use
  Company Number: US-GALDERMA-US-GDP-12414820

PATIENT
  Age: 26 Year
  Sex: Female

DRUGS (4)
  1. DIFFERIN (ADAPALENE) GEL, 0.3% [Suspect]
     Indication: ACNE
     Route: 061
     Dates: start: 20120514
  2. DOVE SENSITIVE SKIN UNSCENTED BAR SOAP [Concomitant]
     Indication: THERAPEUTIC SKIN CARE TOPICAL
     Dosage: UNKNOWN
     Route: 061
  3. ST. IVES COLLAGEN ELASTIN FACIAL MOISTURIZER [Concomitant]
     Indication: THERAPEUTIC SKIN CARE TOPICAL
     Dosage: UNKNOWN
     Route: 061
  4. SODIUM SULFACETAMIDE [Concomitant]
     Indication: ACNE
     Dosage: UNKNOWN
     Route: 061
     Dates: start: 20120514

REACTIONS (7)
  - Acne [Recovered/Resolved]
  - Skin exfoliation [Recovered/Resolved]
  - Skin burning sensation [Recovered/Resolved]
  - Erythema [Recovered/Resolved]
  - Skin discomfort [Recovered/Resolved]
  - Dry skin [Recovered/Resolved]
  - Skin irritation [Recovered/Resolved]
